FAERS Safety Report 15935921 (Version 3)
Quarter: 2022Q1

REPORT INFORMATION
  Report Type: Spontaneous
  Country: SK (occurrence: SK)
  Receive Date: 20190208
  Receipt Date: 20220316
  Transmission Date: 20220423
  Serious: Yes (Other)
  Sender: FDA-Public Use
  Company Number: None

PATIENT
  Age: 70 Year
  Sex: Female

DRUGS (2)
  1. GEMCITABINE [Suspect]
     Active Substance: GEMCITABINE
     Indication: Pancreatic carcinoma metastatic
     Dosage: 1000 MG/M2, UNK (2 WEEKS OF THERAPY, ONE WEEK PAUSE AND SUBSEQUENTLY 2?WEEKS OF THERAPY)
     Route: 042
     Dates: start: 20160905
  2. PACLITAXEL [Suspect]
     Active Substance: PACLITAXEL
     Indication: Pancreatic carcinoma metastatic
     Dosage: 125 MG/M2, UNK (2 WEEKS OF THERAPY, ONE WEEK PAUSE AND SUBSEQUENTLY 2?WEEKS OF THERAPY)
     Route: 041
     Dates: start: 20160905

REACTIONS (5)
  - Leukopenia [Recovering/Resolving]
  - Thrombocytopenia [Recovering/Resolving]
  - Pancytopenia [Recovering/Resolving]
  - Haematotoxicity [Recovering/Resolving]
  - Off label use [Unknown]

NARRATIVE: CASE EVENT DATE: 20160101
